FAERS Safety Report 9103907 (Version 1)
Quarter: 2013Q1

REPORT INFORMATION
  Report Type: Spontaneous
  Country: US (occurrence: US)
  Receive Date: 20130219
  Receipt Date: 20130219
  Transmission Date: 20140127
  Serious: Yes (Other)
  Sender: FDA-Public Use
  Company Number: US-SANOFI-AVENTIS-2012SA016826

PATIENT
  Age: 78 Year
  Sex: Female

DRUGS (2)
  1. DIABETA [Suspect]
     Route: 065
  2. BLINDED THERAPY [Suspect]
     Route: 065

REACTIONS (3)
  - Hypoglycaemic unconsciousness [Recovered/Resolved]
  - Delirium [Recovered/Resolved]
  - Disorientation [Recovered/Resolved]
